FAERS Safety Report 8192013-1 (Version None)
Quarter: 2012Q1

REPORT INFORMATION
  Report Type: 
  Country: None (occurrence: None)
  Receive Date: 20120307
  Receipt Date: 20120302
  Transmission Date: 20120608
  Serious: Yes (Other)
  Sender: FDA-Public Use
  Company Number: PHHY2012IT018954

PATIENT
  Sex: Male

DRUGS (2)
  1. ZOMETA [Suspect]
     Indication: PROSTATE CANCER
     Dosage: 4 MG, CYCLIC
     Route: 042
     Dates: start: 20080107, end: 20100808
  2. CASODEX [Concomitant]

REACTIONS (1)
  - OSTEONECROSIS OF JAW [None]
